FAERS Safety Report 13686931 (Version 1)
Quarter: 2017Q2

REPORT INFORMATION
  Report Type: Report from Study
  Country: US (occurrence: BR)
  Receive Date: 20170623
  Receipt Date: 20170623
  Transmission Date: 20170830
  Serious: Yes (Hospitalization, Other)
  Sender: FDA-Public Use
  Company Number: US-SUNOVION-2017SUN002645

PATIENT
  Sex: Female
  Weight: 61.5 kg

DRUGS (2)
  1. INDACATEROL AND GLYCOPYRROLATE [Suspect]
     Active Substance: GLYCOPYRROLATE\INDACATEROL MALEATE
     Indication: EMPHYSEMA
     Dosage: 1 DF (110/50 UG), UNK
     Route: 065
     Dates: start: 20170415
  2. INDACATEROL AND GLYCOPYRROLATE [Suspect]
     Active Substance: GLYCOPYRROLATE\INDACATEROL MALEATE
     Indication: CHRONIC OBSTRUCTIVE PULMONARY DISEASE

REACTIONS (8)
  - Catarrh [Unknown]
  - Malaise [Unknown]
  - Headache [Unknown]
  - Back pain [Unknown]
  - Spinal disorder [Unknown]
  - Haematemesis [Recovering/Resolving]
  - Lung disorder [Unknown]
  - Musculoskeletal chest pain [Unknown]
